FAERS Safety Report 17059274 (Version 1)
Quarter: 2019Q4

REPORT INFORMATION
  Report Type: Spontaneous
  Country: US (occurrence: US)
  Receive Date: 20191121
  Receipt Date: 20191121
  Transmission Date: 20200122
  Serious: Yes (Hospitalization, Other)
  Sender: FDA-Public Use
  Company Number: US-OTSUKA-US-2011-10261

PATIENT
  Age: 4 Year
  Sex: Male

DRUGS (14)
  1. TACROLIMUS. [Concomitant]
     Active Substance: TACROLIMUS
     Dosage: 10 QD
     Route: 048
  2. AMINOCAPROIC ACID. [Concomitant]
     Active Substance: AMINOCAPROIC ACID
     Dosage: 45 MG/KG, QID
     Route: 042
  3. BUSULFEX [Suspect]
     Active Substance: BUSULFAN
     Indication: CORD BLOOD TRANSPLANT THERAPY
     Dosage: 16 MG/KG, QD
     Route: 042
  4. ATGAM TF [Concomitant]
     Indication: PRODUCT USED FOR UNKNOWN INDICATION
     Dosage: 90 MG/KG, QD
     Route: 042
  5. AMINOCAPROIC ACID. [Concomitant]
     Active Substance: AMINOCAPROIC ACID
     Indication: HAEMORRHAGE
     Dosage: 15 MG/KG, QID
     Route: 042
  6. MYCOPHENOLATE MOFETIL. [Concomitant]
     Active Substance: MYCOPHENOLATE MOFETIL
     Indication: PRODUCT USED FOR UNKNOWN INDICATION
     Dosage: 15 MG/KG, TID
     Route: 065
  7. MYCOPHENOLATE MOFETIL. [Concomitant]
     Active Substance: MYCOPHENOLATE MOFETIL
     Dosage: 15 MG/KG, BID
     Route: 065
  8. BUSULFEX [Suspect]
     Active Substance: BUSULFAN
     Indication: BONE MARROW TRANSPLANT
  9. DEOXYCHOLIC ACID [Concomitant]
     Active Substance: DEOXYCHOLIC ACID
     Indication: PROPHYLAXIS
     Dosage: UNK
     Route: 065
  10. IMMUNOGLOBULIN [Concomitant]
     Indication: PROPHYLAXIS
     Dosage: UNK
     Route: 042
  11. TACROLIMUS. [Concomitant]
     Active Substance: TACROLIMUS
     Dosage: .5 MCG/DL, UNK
     Route: 042
  12. CYCLOPHOSPHAMIDE. [Concomitant]
     Active Substance: CYCLOPHOSPHAMIDE
     Indication: BONE MARROW TRANSPLANT
     Dosage: 200 MG/KG, QD
     Route: 042
  13. TACROLIMUS. [Concomitant]
     Active Substance: TACROLIMUS
     Indication: GRAFT VERSUS HOST DISEASE
     Dosage: 10, QD
     Route: 042
  14. RITUXIMAB. [Concomitant]
     Active Substance: RITUXIMAB
     Indication: STEM CELL TRANSPLANT
     Dosage: 375 MG/M2, QD
     Route: 065

REACTIONS (6)
  - Graft versus host disease [Recovered/Resolved]
  - Haematuria [Recovered/Resolved]
  - Mucosal haemorrhage [Recovered/Resolved]
  - Cytomegalovirus viraemia [Recovered/Resolved]
  - Dysuria [Recovered/Resolved]
  - BK virus infection [Unknown]
